FAERS Safety Report 8262542-0 (Version None)
Quarter: 2012Q2

REPORT INFORMATION
  Report Type: 
  Country: None (occurrence: None)
  Receive Date: 20120405
  Receipt Date: 20120328
  Transmission Date: 20120825
  Serious: Yes (Hospitalization)
  Sender: FDA-Public Use
  Company Number: US-ASTRAZENECA-2012SE21002

PATIENT
  Age: 67 Year
  Sex: Female
  Weight: 104.3 kg

DRUGS (6)
  1. CRESTOR [Suspect]
     Route: 048
  2. ASPIRIN [Concomitant]
  3. PEPCID [Concomitant]
  4. MULTI-VITAMIN [Concomitant]
  5. CRESTOR [Suspect]
     Route: 048
     Dates: start: 20111201
  6. GENUMET [Concomitant]
     Indication: DIABETES MELLITUS

REACTIONS (3)
  - INTENTIONAL DRUG MISUSE [None]
  - BLOOD GLUCOSE INCREASED [None]
  - TRANSIENT ISCHAEMIC ATTACK [None]
